FAERS Safety Report 5985541-8 (Version None)
Quarter: 2008Q4

REPORT INFORMATION
  Report Type: 
  Country: None (occurrence: None)
  Receive Date: 20081208
  Receipt Date: 20080324
  Transmission Date: 20090506
  Serious: No
  Sender: FDA-Public Use
  Company Number: US-AMGEN-KDL270923

PATIENT
  Sex: Female

DRUGS (1)
  1. ENBREL [Suspect]
     Indication: RHEUMATOID ARTHRITIS

REACTIONS (4)
  - INJECTION SITE PAIN [None]
  - INJECTION SITE URTICARIA [None]
  - INJECTION SITE WARMTH [None]
  - SURGERY [None]
